FAERS Safety Report 9079340 (Version 5)
Quarter: 2013Q2

REPORT INFORMATION
  Report Type: Report from Study
  Country: JP (occurrence: JP)
  Receive Date: 20130215
  Receipt Date: 20130405
  Transmission Date: 20140414
  Serious: Yes (Death, Other)
  Sender: FDA-Public Use
  Company Number: JP-OTSUKA-JP-2013-10224

PATIENT
  Age: 74 Year
  Sex: Male
  Weight: 57 kg

DRUGS (10)
  1. SAMSCA [Suspect]
     Indication: FLUID RETENTION
     Dosage: 15 MG MILLIGRAM(S), QAM
     Route: 048
     Dates: start: 20121220, end: 20121223
  2. ASPARA K [Concomitant]
     Dosage: 300 MG MILLIGRAM(S), DAILY DOSE
     Route: 048
     Dates: end: 20121217
  3. WARFARIN POTASSIUM [Concomitant]
     Dosage: 2.4 MG MILLIGRAM(S), DAILY DOSE
     Route: 048
     Dates: end: 20121217
  4. LASIX [Concomitant]
     Indication: CARDIAC FAILURE
     Dosage: 20 MG MILLIGRAM(S), DAILY DOSE
     Route: 048
     Dates: end: 20121219
  5. HALFDIGOXIN [Concomitant]
     Indication: CARDIAC FAILURE
     Dosage: 62.5 MCG, DAILY DOSE
     Route: 048
     Dates: end: 20121225
  6. PARIET [Concomitant]
     Dosage: 10 MG MILLIGRAM(S), DAILY DOSE
     Route: 048
     Dates: end: 20121226
  7. ARTIST [Concomitant]
     Indication: CARDIAC FAILURE
     Dosage: 10 MG MILLIGRAM(S), DAILY DOSE
     Route: 048
     Dates: end: 20121227
  8. MILRILA [Concomitant]
     Indication: CARDIAC FAILURE
     Dosage: 0.025 UG/KG/MIN, UNK
     Route: 042
     Dates: end: 20121229
  9. LASIX [Concomitant]
     Indication: CARDIAC FAILURE
     Dosage: 10 MG MILLIGRAM(S), DAILY DOSE
     Route: 042
     Dates: start: 20121220, end: 20121221
  10. KAYTWO [Concomitant]
     Indication: HEPATIC FAILURE
     Dosage: 10 MG MILLIGRAM(S), DAILY DOSE
     Route: 042
     Dates: start: 20121222, end: 20121228

REACTIONS (3)
  - Dehydration [Recovered/Resolved]
  - Hepatic failure [Fatal]
  - Hypernatraemia [Not Recovered/Not Resolved]
